FAERS Safety Report 10179124 (Version 1)
Quarter: 2014Q2

REPORT INFORMATION
  Report Type: Spontaneous
  Country: AU (occurrence: AU)
  Receive Date: 20140519
  Receipt Date: 20140519
  Transmission Date: 20141212
  Serious: Yes (Disabling)
  Sender: FDA-Public Use
  Company Number: AU-MERCK-1405AUS007553

PATIENT
  Age: 79 Year
  Sex: Female

DRUGS (3)
  1. AVANZA SOLTAB [Suspect]
     Dosage: 45 MG, DAILY
     Route: 048
     Dates: start: 201402, end: 201402
  2. AVANZA [Concomitant]
     Dosage: UNK
     Route: 048
     Dates: start: 201402, end: 201402
  3. AVANZA [Concomitant]
     Dosage: UNK
     Route: 048
     Dates: start: 201402

REACTIONS (3)
  - Dysphagia [Recovered/Resolved]
  - Product substitution issue [Recovered/Resolved]
  - Hypoaesthesia oral [Recovered/Resolved]
